FAERS Safety Report 9060883 (Version 16)
Quarter: 2015Q3

REPORT INFORMATION
  Report Type: Report from Study
  Country: DE (occurrence: DE)
  Receive Date: 20130204
  Receipt Date: 20150722
  Transmission Date: 20151125
  Serious: Yes (Death, Life-Threatening, Hospitalization, Other)
  Sender: FDA-Public Use
  Company Number: PHHY2013DE009978

PATIENT
  Age: 74 Year
  Sex: Male
  Weight: 44 kg

DRUGS (25)
  1. AFINITOR [Suspect]
     Active Substance: EVEROLIMUS
     Dosage: 5 MG, QD
     Route: 048
     Dates: start: 20121004, end: 20121030
  2. PANKREON [Concomitant]
     Indication: PANCREATIC INSUFFICIENCY
     Dosage: 3 DF, BID
     Route: 065
  3. NOVALGIN [Concomitant]
     Active Substance: METAMIZOLE SODIUM
     Dosage: 3X25 GGT
     Route: 065
     Dates: start: 201201
  4. LEFAX [Concomitant]
     Indication: ABDOMINAL DISTENSION
     Dosage: UNK UKN, PRN
     Route: 065
  5. LANSOPRAZOLE. [Concomitant]
     Active Substance: LANSOPRAZOLE
     Indication: COLITIS
     Dosage: 15 MG, UNK
     Route: 065
     Dates: start: 20111123
  6. DIFLUCAN [Concomitant]
     Active Substance: FLUCONAZOLE
     Indication: ORAL CANDIDIASIS
     Route: 065
     Dates: start: 20120910
  7. NOVALGIN [Concomitant]
     Active Substance: METAMIZOLE SODIUM
     Indication: PAIN
     Route: 065
  8. FERRO SANOL DROPS [Concomitant]
     Indication: IRON DEFICIENCY ANAEMIA
     Dosage: 40 MG, QD
     Route: 048
     Dates: start: 201111
  9. SPIRO COMP [Concomitant]
     Indication: ASCITES
     Dosage: 2 DF, QD
     Route: 065
     Dates: start: 201207
  10. TARGIN [Concomitant]
     Active Substance: NALOXONE HYDROCHLORIDE\OXYCODONE HYDROCHLORIDE
     Indication: PAIN
     Dosage: 2 DF, BID
     Route: 065
     Dates: start: 201206
  11. MEBEVERIN DURA [Concomitant]
     Indication: COLITIS
     Dosage: 1 DF, QD
     Route: 065
     Dates: start: 20111123
  12. FRESUBIN [Concomitant]
     Active Substance: AMINO ACIDS\DEXTROSE\ELECTROLYTES NOS\SOYBEAN OIL\VITAMINS
     Indication: GENERAL PHYSICAL HEALTH DETERIORATION
     Route: 065
  13. HEPA MERZ [Concomitant]
     Indication: HEPATIC STEATOSIS
     Route: 065
     Dates: start: 201203
  14. MCP [Concomitant]
     Active Substance: METOCLOPRAMIDE HYDROCHLORIDE
     Indication: COLITIS
     Dosage: UNK UKN, PRN
     Route: 065
     Dates: start: 201201
  15. GALVUS [Concomitant]
     Active Substance: VILDAGLIPTIN
     Indication: TYPE 2 DIABETES MELLITUS
     Dosage: 50 MG, UNK
     Route: 065
     Dates: start: 201104
  16. AFINITOR [Suspect]
     Active Substance: EVEROLIMUS
     Indication: PANCREATIC NEUROENDOCRINE TUMOUR
     Dosage: 10 MG, QD
     Route: 048
     Dates: start: 20120801, end: 20120929
  17. FUROSEMID//FUROSEMIDE [Concomitant]
     Indication: DIURETIC THERAPY
     Dosage: 1 VIAL, TWO WEEKLY
     Route: 042
     Dates: start: 201201
  18. FUROSEMID//FUROSEMIDE [Concomitant]
     Indication: ASCITES
     Dosage: 100 MG, QD
     Route: 065
  19. FUROSEMID//FUROSEMIDE [Concomitant]
     Dosage: 1 DF, UNK
     Route: 065
     Dates: start: 201201
  20. ALDACTONE [Concomitant]
     Active Substance: SPIRONOLACTONE
     Indication: ASCITES
     Dosage: 2 DF, 2 WEEKLY
     Route: 042
     Dates: start: 201201
  21. SALOFALK [Concomitant]
     Active Substance: MESALAMINE
     Indication: COLITIS
     Dosage: 3 DF, QD
     Route: 065
     Dates: start: 20111123
  22. KALINOR [Concomitant]
     Active Substance: POTASSIUM CITRATE
     Indication: HYPOKALAEMIA
     Route: 065
     Dates: start: 201209
  23. FUROSEMID//FUROSEMIDE [Concomitant]
     Route: 065
     Dates: start: 201201
  24. ALDACTONE [Concomitant]
     Active Substance: SPIRONOLACTONE
     Indication: ASCITES
     Route: 065
     Dates: start: 201201
  25. FRESUBIN [Concomitant]
     Active Substance: AMINO ACIDS\DEXTROSE\ELECTROLYTES NOS\SOYBEAN OIL\VITAMINS
     Indication: WEIGHT DECREASED
     Dosage: 200 ML, PRN
     Route: 065
     Dates: start: 201108

REACTIONS (11)
  - Haemoglobin decreased [Recovering/Resolving]
  - Sideroblastic anaemia [Unknown]
  - Quality of life decreased [Recovering/Resolving]
  - Drug ineffective [Unknown]
  - Mucosal inflammation [Recovering/Resolving]
  - Oral candidiasis [Unknown]
  - Malignant neoplasm progression [Fatal]
  - Chills [Unknown]
  - Body temperature increased [Unknown]
  - Osteoporosis [Not Recovered/Not Resolved]
  - General physical health deterioration [Not Recovered/Not Resolved]

NARRATIVE: CASE EVENT DATE: 20120801
